FAERS Safety Report 6541582-3 (Version None)
Quarter: 2010Q1

REPORT INFORMATION
  Report Type: 
  Country: None (occurrence: None)
  Receive Date: 20100119
  Receipt Date: 20100114
  Transmission Date: 20100710
  Serious: Yes (Hospitalization)
  Sender: FDA-Public Use
  Company Number: NL-ROCHE-679628

PATIENT
  Sex: Female

DRUGS (9)
  1. CAPECITABINE [Suspect]
     Route: 048
  2. BEVACIZUMAB [Suspect]
     Dosage: TEMPORARILY DISCONTINUED, LAST DOSE PRIOR TO SAE: 30 NOV 2009, THERAPY DURATION: 21 WEEKS
     Route: 042
     Dates: start: 20090713
  3. PACLITAXEL [Suspect]
     Dosage: TEMPORARILY DISCONTINUED, LAST DOSE PRUIOR TO SAE: 07 DEC 2009, THERAPY DURATION: 22 WEEKS
     Route: 042
     Dates: start: 20090713
  4. LACTULOSE [Concomitant]
  5. LOSAZID [Concomitant]
     Dosage: DRUG NAME REPORTED AS LOSAZID 100/25.
     Dates: start: 20080702
  6. PARACETAMOL [Concomitant]
  7. DEXAMETHASONE TAB [Concomitant]
     Dates: start: 20091207, end: 20091207
  8. ONDANSETRON [Concomitant]
     Dates: start: 20091207, end: 20091207
  9. METOCLOPRAMIDE [Concomitant]
     Dates: start: 20090101

REACTIONS (1)
  - RECTAL PERFORATION [None]
